FAERS Safety Report 5950329-0 (Version None)
Quarter: 2008Q4

REPORT INFORMATION
  Report Type: 
  Country: None (occurrence: None)
  Receive Date: 20081022
  Receipt Date: 20080711
  Transmission Date: 20090506
  Serious: No
  Sender: FDA-Public Use
  Company Number: ALL1-2008-01993

PATIENT
  Age: 27 Year
  Sex: Female

DRUGS (2)
  1. VYVANSE [Suspect]
     Dosage: ORAL
     Route: 048
     Dates: start: 20071101
  2. LAMICTAL [Concomitant]

REACTIONS (1)
  - ACNE [None]
